FAERS Safety Report 19164110 (Version 1)
Quarter: 2021Q2

REPORT INFORMATION
  Report Type: Report from Study
  Country: US (occurrence: US)
  Receive Date: 20210421
  Receipt Date: 20210421
  Transmission Date: 20210717
  Serious: No
  Sender: FDA-Public Use
  Company Number: US-GW PHARMA-202104USGW01670

PATIENT

DRUGS (7)
  1. EPIDIOLEX [Suspect]
     Active Substance: CANNABIDIOL
     Indication: LENNOX-GASTAUT SYNDROME
     Dosage: 13.16 MG/KG/DAY, 400 MILLIGRAM, QD
     Route: 048
     Dates: start: 2018
  2. PERAMPANEL [Concomitant]
     Active Substance: PERAMPANEL
     Indication: LENNOX-GASTAUT SYNDROME
     Dosage: UNK
     Route: 065
  3. CLOBAZAM. [Concomitant]
     Active Substance: CLOBAZAM
     Indication: LENNOX-GASTAUT SYNDROME
     Dosage: UNK
     Route: 065
  4. LAMOTRIGINE. [Concomitant]
     Active Substance: LAMOTRIGINE
     Indication: LENNOX-GASTAUT SYNDROME
     Dosage: UNK
     Route: 065
  5. CLONAZEPAM. [Concomitant]
     Active Substance: CLONAZEPAM
     Indication: LENNOX-GASTAUT SYNDROME
     Dosage: UNK
     Route: 065
  6. ETHOSUXIMIDE. [Concomitant]
     Active Substance: ETHOSUXIMIDE
     Indication: LENNOX-GASTAUT SYNDROME
     Dosage: UNK
     Route: 065
  7. LACOSAMIDE. [Concomitant]
     Active Substance: LACOSAMIDE
     Indication: LENNOX-GASTAUT SYNDROME
     Dosage: UNK
     Route: 065

REACTIONS (1)
  - Condition aggravated [Unknown]
